FAERS Safety Report 5524863-1 (Version None)
Quarter: 2007Q4

REPORT INFORMATION
  Report Type: 
  Country: None (occurrence: None)
  Receive Date: 20071116
  Receipt Date: 20071108
  Transmission Date: 20080405
  Serious: Yes (Hospitalization, Disabling)
  Sender: FDA-Public Use
  Company Number: OSCN-NO-0707S-0301

PATIENT
  Age: 59 Year
  Sex: Female

DRUGS (24)
  1. OMNISCAN [Suspect]
     Indication: BACK PAIN
     Dosage: SEE IMAGE
     Route: 042
     Dates: start: 20030526, end: 20030526
  2. OMNISCAN [Suspect]
     Indication: DRUG USE FOR UNKNOWN INDICATION
     Dosage: SEE IMAGE
     Route: 042
     Dates: start: 20030526, end: 20030526
  3. OMNISCAN [Suspect]
     Indication: NEUROLOGICAL EXAMINATION
     Dosage: SEE IMAGE
     Route: 042
     Dates: start: 20030526, end: 20030526
  4. OMNISCAN [Suspect]
     Indication: TRANSIENT ISCHAEMIC ATTACK
     Dosage: SEE IMAGE
     Route: 042
     Dates: start: 20030526, end: 20030526
  5. OMNISCAN [Suspect]
     Indication: BACK PAIN
     Dosage: SEE IMAGE
     Route: 042
     Dates: start: 20041117, end: 20041117
  6. OMNISCAN [Suspect]
     Indication: DRUG USE FOR UNKNOWN INDICATION
     Dosage: SEE IMAGE
     Route: 042
     Dates: start: 20041117, end: 20041117
  7. OMNISCAN [Suspect]
     Indication: NEUROLOGICAL EXAMINATION
     Dosage: SEE IMAGE
     Route: 042
     Dates: start: 20041117, end: 20041117
  8. OMNISCAN [Suspect]
     Indication: TRANSIENT ISCHAEMIC ATTACK
     Dosage: SEE IMAGE
     Route: 042
     Dates: start: 20041117, end: 20041117
  9. OMNISCAN [Suspect]
     Indication: BACK PAIN
     Dosage: SEE IMAGE
     Route: 042
     Dates: start: 20060204, end: 20060204
  10. OMNISCAN [Suspect]
     Indication: DRUG USE FOR UNKNOWN INDICATION
     Dosage: SEE IMAGE
     Route: 042
     Dates: start: 20060204, end: 20060204
  11. OMNISCAN [Suspect]
     Indication: NEUROLOGICAL EXAMINATION
     Dosage: SEE IMAGE
     Route: 042
     Dates: start: 20060204, end: 20060204
  12. OMNISCAN [Suspect]
     Indication: TRANSIENT ISCHAEMIC ATTACK
     Dosage: SEE IMAGE
     Route: 042
     Dates: start: 20060204, end: 20060204
  13. OMNISCAN [Suspect]
     Indication: BACK PAIN
     Dosage: SEE IMAGE
     Route: 042
     Dates: start: 20060720, end: 20060720
  14. OMNISCAN [Suspect]
     Indication: DRUG USE FOR UNKNOWN INDICATION
     Dosage: SEE IMAGE
     Route: 042
     Dates: start: 20060720, end: 20060720
  15. OMNISCAN [Suspect]
     Indication: NEUROLOGICAL EXAMINATION
     Dosage: SEE IMAGE
     Route: 042
     Dates: start: 20060720, end: 20060720
  16. OMNISCAN [Suspect]
     Indication: TRANSIENT ISCHAEMIC ATTACK
     Dosage: SEE IMAGE
     Route: 042
     Dates: start: 20060720, end: 20060720
  17. MEGLUMINE GADOTERATE (DOTAREM) [Concomitant]
  18. GADOPENTETATE DIMEGLUMINE (MAGNEVIST) [Concomitant]
  19. FLUOROURACIL [Concomitant]
  20. PROLEUKIN [Concomitant]
  21. INTRON A [Concomitant]
  22. VINBLASTINE SULFATE (VELBE) [Concomitant]
  23. CELECTOL [Concomitant]
  24. CIPROFIBRATE (LIPANOR) [Concomitant]

REACTIONS (6)
  - CEREBROVASCULAR ACCIDENT [None]
  - DRUG INEFFECTIVE [None]
  - DRUG TOLERANCE DECREASED [None]
  - METASTASES TO LUNG [None]
  - NEPHROGENIC SYSTEMIC FIBROSIS [None]
  - SENSORY LOSS [None]
